FAERS Safety Report 4833567-X (Version None)
Quarter: 2005Q4

REPORT INFORMATION
  Report Type: 
  Country: None (occurrence: None)
  Receive Date: 20051121
  Receipt Date: 20050928
  Transmission Date: 20060501
  Serious: Yes (Hospitalization, Other)
  Sender: FDA-Public Use
  Company Number: US-MERCK-0509USA04388

PATIENT
  Age: 64 Year
  Sex: Male
  Weight: 69 kg

DRUGS (13)
  1. VIOXX [Suspect]
     Indication: ARTHRITIS
     Route: 048
     Dates: start: 19990601, end: 20040930
  2. LISINOPRIL [Concomitant]
     Route: 065
  3. PAXIL [Concomitant]
     Route: 065
  4. WARFARIN [Concomitant]
     Route: 065
  5. AMITRIPTYLINE HYDROCHLORIDE [Concomitant]
     Route: 065
  6. SULINDAC(WEST POINT PHARMA) [Concomitant]
     Route: 065
  7. PHENYTOIN [Concomitant]
     Route: 065
  8. COREG [Concomitant]
     Route: 065
  9. PREVACID [Concomitant]
     Route: 065
  10. ASPIRIN [Concomitant]
     Route: 065
  11. ISOSORBIDE [Concomitant]
     Route: 065
  12. LEVOTHROID [Concomitant]
     Route: 065
  13. COUMADIN [Concomitant]
     Route: 065

REACTIONS (5)
  - CARDIAC DISORDER [None]
  - CARDIAC PACEMAKER INSERTION [None]
  - CARDIOVASCULAR DISORDER [None]
  - CEREBROVASCULAR ACCIDENT [None]
  - DEVICE FAILURE [None]
